FAERS Safety Report 20408837 (Version 3)
Quarter: 2022Q1

REPORT INFORMATION
  Report Type: Spontaneous
  Country: FR (occurrence: FR)
  Receive Date: 20220201
  Receipt Date: 20220224
  Transmission Date: 20220423
  Serious: Yes (Other)
  Sender: FDA-Public Use
  Company Number: FR-Accord-250641

PATIENT
  Age: 15 Year
  Sex: Male

DRUGS (7)
  1. VORICONAZOLE [Interacting]
     Active Substance: VORICONAZOLE
     Indication: Bronchopulmonary aspergillosis
     Dosage: UNK
     Route: 065
  2. VORICONAZOLE [Interacting]
     Active Substance: VORICONAZOLE
     Indication: Tuberculosis
  3. ETHAMBUTOL [Interacting]
     Active Substance: ETHAMBUTOL HYDROCHLORIDE
     Indication: Pulmonary tuberculosis
     Dosage: 22.2 MILLIGRAM/KILOGRAM, ONCE A DAY (INTRODUCED TWO MONTHS LATER)
     Route: 065
  4. TACROLIMUS [Concomitant]
     Active Substance: TACROLIMUS
     Indication: Prophylaxis against transplant rejection
     Dosage: UNK
     Route: 065
  5. TACROLIMUS [Concomitant]
     Active Substance: TACROLIMUS
     Indication: Immunosuppressant drug therapy
  6. CORTISONE [Concomitant]
     Active Substance: CORTISONE
     Indication: Prophylaxis against transplant rejection
     Dosage: UNK
     Route: 065
  7. CORTISONE [Concomitant]
     Active Substance: CORTISONE
     Indication: Immunosuppressant drug therapy

REACTIONS (8)
  - Drug interaction [Unknown]
  - Neuropathy peripheral [Recovered/Resolved]
  - Potentiating drug interaction [Unknown]
  - Toxic optic neuropathy [Recovered/Resolved]
  - Visual acuity reduced [Recovered/Resolved]
  - Visual field defect [Recovered/Resolved]
  - Visual impairment [Recovered/Resolved]
  - Dyschromatopsia [Recovered/Resolved]
